FAERS Safety Report 7474689-7 (Version None)
Quarter: 2011Q2

REPORT INFORMATION
  Report Type: 
  Country: None (occurrence: None)
  Receive Date: 20110509
  Receipt Date: 20110509
  Transmission Date: 20111010
  Serious: Yes (Hospitalization)
  Sender: FDA-Public Use
  Company Number: None

PATIENT
  Sex: Male
  Weight: 86.9 kg

DRUGS (1)
  1. XELODA [Suspect]
     Dosage: 11550 MG
     Dates: end: 20110428

REACTIONS (4)
  - CATHETERISATION CARDIAC ABNORMAL [None]
  - PAIN IN EXTREMITY [None]
  - DYSPNOEA [None]
  - CHEST PAIN [None]
